FAERS Safety Report 17950463 (Version 3)
Quarter: 2020Q3

REPORT INFORMATION
  Report Type: Report from Study
  Country: BR (occurrence: BR)
  Receive Date: 20200626
  Receipt Date: 20200820
  Transmission Date: 20201103
  Serious: Yes (Disabling, Other)
  Sender: FDA-Public Use
  Company Number: NVSC2020BR176127

PATIENT
  Age: 32 Year
  Sex: Male

DRUGS (4)
  1. NATRILIX [Concomitant]
     Active Substance: INDAPAMIDE
     Indication: PRODUCT USED FOR UNKNOWN INDICATION
     Dosage: UNK
     Route: 065
     Dates: start: 2010
  2. AZITHROMYCIN ANHYDROUS. [Suspect]
     Active Substance: AZITHROMYCIN ANHYDROUS
     Indication: PNEUMONIA
     Dosage: UNK
     Route: 065
  3. TRAVATAN [Suspect]
     Active Substance: TRAVOPROST
     Indication: GLAUCOMA
     Dosage: (0.5ML OR 2.5 ML GTT) QD
     Route: 065
  4. LASIX [Concomitant]
     Active Substance: FUROSEMIDE
     Indication: PRODUCT USED FOR UNKNOWN INDICATION
     Dosage: 40 MG, CONT
     Route: 065
     Dates: start: 2014

REACTIONS (11)
  - Cough [Recovered/Resolved]
  - Feeling abnormal [Unknown]
  - Eye irritation [Recovered/Resolved]
  - Metastases to thyroid [Recovered/Resolved]
  - Overweight [Not Recovered/Not Resolved]
  - Weight increased [Unknown]
  - Concomitant disease aggravated [Not Recovered/Not Resolved]
  - Pneumonia [Recovered/Resolved]
  - Underdose [Unknown]
  - Liquid product physical issue [Unknown]
  - Blindness [Unknown]

NARRATIVE: CASE EVENT DATE: 200710
